FAERS Safety Report 13702569 (Version 1)
Quarter: 2017Q2

REPORT INFORMATION
  Report Type: Spontaneous
  Country: JP (occurrence: JP)
  Receive Date: 20170629
  Receipt Date: 20170629
  Transmission Date: 20170830
  Serious: Yes (Hospitalization)
  Sender: FDA-Public Use
  Company Number: JP-ELI_LILLY_AND_COMPANY-JP201705008528

PATIENT

DRUGS (1)
  1. INSULIN GLARGINE BS INJ. MIRIOPEN [LILLY] [Suspect]
     Active Substance: INSULIN GLARGINE
     Indication: PRODUCT USED FOR UNKNOWN INDICATION
     Dosage: UNK
     Route: 058

REACTIONS (3)
  - Intentional product misuse [Unknown]
  - Suicide attempt [Unknown]
  - Hypoglycaemic encephalopathy [Not Recovered/Not Resolved]

NARRATIVE: CASE EVENT DATE: 20170519
